FAERS Safety Report 5162041-9 (Version None)
Quarter: 2006Q4

REPORT INFORMATION
  Report Type: 
  Country: None (occurrence: None)
  Receive Date: 20061121
  Receipt Date: 20060908
  Transmission Date: 20070319
  Serious: Yes (Hospitalization)
  Sender: FDA-Public Use
  Company Number: DYR2006005

PATIENT
  Age: 64 Year
  Sex: Female

DRUGS (3)
  1. TRIAMTERENE AND HYDROCHLOROTHIAZIDE [Suspect]
     Indication: HYPERTENSION
     Dosage: HCTZ 25MG - TMT 50 MG
  2. HYDROCHLOROTHIAZIDE [Suspect]
     Indication: HYPERTENSION
     Dosage: 25 MG
  3. NONSTEROIDAL ANTIINFLAMMATORY DRUGS [Concomitant]

REACTIONS (6)
  - ACUTE RESPIRATORY FAILURE [None]
  - DYSPNOEA [None]
  - HYPERHIDROSIS [None]
  - MULTI-ORGAN FAILURE [None]
  - MYALGIA [None]
  - SPUTUM ABNORMAL [None]
